FAERS Safety Report 19665860 (Version 1)
Quarter: 2021Q3

REPORT INFORMATION
  Report Type: Spontaneous
  Country: IT (occurrence: IT)
  Receive Date: 20210806
  Receipt Date: 20210806
  Transmission Date: 20211014
  Serious: Yes (Other)
  Sender: FDA-Public Use
  Company Number: IT-AUROBINDO-AUR-APL-2021-032494

PATIENT
  Age: 58 Year
  Sex: Female

DRUGS (5)
  1. PEMETREXED. [Suspect]
     Active Substance: PEMETREXED
     Indication: LUNG ADENOCARCINOMA STAGE III
     Dosage: UNK (PEMETREXED (4 CYCLES), FOLLOWED BY MAINTENANCE THERAPY WITH PEMETREXED ONLY)
     Route: 065
     Dates: start: 201802
  2. CARBOPLATIN. [Suspect]
     Active Substance: CARBOPLATIN
     Indication: LUNG ADENOCARCINOMA STAGE III
     Dosage: UNK UNK, CYCLICAL
     Route: 065
     Dates: start: 201802
  3. ATEZOLIZUMAB. [Concomitant]
     Active Substance: ATEZOLIZUMAB
     Indication: LUNG ADENOCARCINOMA STAGE III
     Dosage: 1200 MILLIGRAM (THRICE IN A WEEK) (SECOND?LINE)
     Route: 065
     Dates: start: 201909
  4. PRALSETINIB. [Concomitant]
     Active Substance: PRALSETINIB
     Indication: LUNG ADENOCARCINOMA STAGE III
     Dosage: UNK
     Route: 065
     Dates: start: 20200814
  5. DENOSUMAB [Concomitant]
     Active Substance: DENOSUMAB
     Indication: LUNG ADENOCARCINOMA STAGE III
     Dosage: 120 MILLIGRAM (4 IN A WEEK) (SECOND?LINE)
     Route: 065
     Dates: start: 201909

REACTIONS (5)
  - Nephropathy toxic [Unknown]
  - Neutropenia [Recovered/Resolved]
  - Anaemia [Recovered/Resolved]
  - Hypophosphataemia [Recovered/Resolved]
  - Off label use [Unknown]
